FAERS Safety Report 26034571 (Version 1)
Quarter: 2025Q4

REPORT INFORMATION
  Report Type: Spontaneous
  Country: US (occurrence: US)
  Receive Date: 20251112
  Receipt Date: 20251112
  Transmission Date: 20260118
  Serious: No
  Sender: BAUSCH AND LOMB
  Company Number: US-BAUSCHBL-2025BNL031584

PATIENT

DRUGS (2)
  1. MIEBO [Suspect]
     Active Substance: PERFLUOROHEXYLOCTANE
     Indication: Product used for unknown indication
  2. CEQUA [Concomitant]
     Active Substance: CYCLOSPORINE
     Dosage: TAKING 3 CEQUA DROPS

REACTIONS (1)
  - Burning sensation [Unknown]
